FAERS Safety Report 5810542-X (Version None)
Quarter: 2008Q3

REPORT INFORMATION
  Report Type: 
  Country: None (occurrence: None)
  Receive Date: 20080715
  Receipt Date: 20080703
  Transmission Date: 20090109
  Serious: Yes (Hospitalization, Other)
  Sender: FDA-Public Use
  Company Number: GR-PFIZER INC-2008056191

PATIENT
  Sex: Male

DRUGS (2)
  1. CHANTIX [Suspect]
     Indication: SMOKING CESSATION THERAPY
  2. AUGMENTIN '125' [Suspect]

REACTIONS (1)
  - HEPATITIS TOXIC [None]
